FAERS Safety Report 8021870-4 (Version None)
Quarter: 2012Q1

REPORT INFORMATION
  Report Type: 
  Country: None (occurrence: None)
  Receive Date: 20120104
  Receipt Date: 20111222
  Transmission Date: 20120608
  Serious: Yes (Hospitalization, Other)
  Sender: FDA-Public Use
  Company Number: US-ASTRAZENECA-2010SE60142

PATIENT
  Age: 82 Year
  Sex: Female

DRUGS (1)
  1. ARIMIDEX [Suspect]
     Route: 048

REACTIONS (13)
  - LUNG NEOPLASM [None]
  - MULTIPLE ALLERGIES [None]
  - RESPIRATORY TRACT CONGESTION [None]
  - STARVATION [None]
  - CHEST PAIN [None]
  - COUGH [None]
  - ALOPECIA [None]
  - NODULE [None]
  - NASOPHARYNGITIS [None]
  - DECREASED APPETITE [None]
  - DYSPNOEA [None]
  - PNEUMONIA [None]
  - NEOPLASM MALIGNANT [None]
